FAERS Safety Report 8317090-6 (Version None)
Quarter: 2012Q2

REPORT INFORMATION
  Report Type: 
  Country: None (occurrence: None)
  Receive Date: 20120427
  Receipt Date: 20120420
  Transmission Date: 20120825
  Serious: Yes (Hospitalization, Other)
  Sender: FDA-Public Use
  Company Number: GB-PFIZER INC-2009231128

PATIENT
  Age: 22 Year
  Sex: Male
  Weight: 82.2 kg

DRUGS (4)
  1. CARBAMAZEPINE [Concomitant]
     Dosage: 200 MG, 2X/DAY
     Dates: start: 20041001
  2. SOMATROPIN [Suspect]
     Dosage: 0.6 MG, 1X/DAY
     Route: 058
  3. LEVOTHYROXINE [Concomitant]
     Dosage: 50 UG, 1X/DAY
     Dates: start: 20080907
  4. SOMATROPIN [Suspect]
     Indication: GROWTH HORMONE DEFICIENCY
     Dosage: 0.4 MG, 1X/DAY
     Route: 058
     Dates: start: 20060614

REACTIONS (1)
  - NEURILEMMOMA MALIGNANT [None]
